FAERS Safety Report 9529391 (Version 1)
Quarter: 2013Q1

REPORT INFORMATION
  Report Type: Spontaneous
  Country: US (occurrence: None)
  Receive Date: 20130318
  Receipt Date: 20130318
  Transmission Date: 20140127
  Serious: Yes (Other)
  Sender: FDA-Public Use
  Company Number: 1301USA000174

PATIENT
  Age: 48 Year
  Sex: Male

DRUGS (3)
  1. PEGINTRON (PEGINTERFERON ALFA-2B) POWDER FOR INJECTION [Suspect]
     Indication: HEPATITIS C
     Route: 058
     Dates: start: 20121121
  2. RIBAVIRIN (RIBAVIRIN) CAPSULE [Suspect]
     Indication: HEPATITIS C
     Route: 048
     Dates: start: 20121121
  3. VICTRELIS (BOCEPREVIR) CAPSULE [Suspect]
     Indication: HEPATITIS C
     Route: 048
     Dates: start: 20121226

REACTIONS (10)
  - Aggression [None]
  - Dry mouth [None]
  - Dysgeusia [None]
  - White blood cell count decreased [None]
  - Platelet count decreased [None]
  - Musculoskeletal disorder [None]
  - Arthritis [None]
  - Muscle spasms [None]
  - Agitation [None]
  - Agitation [None]
